FAERS Safety Report 6195462-6 (Version None)
Quarter: 2009Q2

REPORT INFORMATION
  Report Type: 
  Country: None (occurrence: None)
  Receive Date: 20090519
  Receipt Date: 20090513
  Transmission Date: 20091009
  Serious: Yes (Death)
  Sender: FDA-Public Use
  Company Number: FR-SANOFI-SYNTHELABO-F01200900164

PATIENT
  Sex: Male
  Weight: 95 kg

DRUGS (9)
  1. KARDEGIC [Concomitant]
     Indication: CORONARY ARTERY BYPASS
     Route: 048
     Dates: start: 20010101
  2. DOCETAXEL [Suspect]
     Route: 042
     Dates: start: 20090209, end: 20090209
  3. OXALIPLATIN [Suspect]
     Indication: GASTRIC CANCER
     Route: 042
     Dates: start: 20090209, end: 20090209
  4. APROVEL [Concomitant]
     Indication: HYPERTENSION
     Route: 048
  5. OMACOR [Concomitant]
     Indication: DYSLIPIDAEMIA
     Route: 048
     Dates: start: 20010101
  6. CRESTOR [Concomitant]
     Indication: DYSLIPIDAEMIA
     Route: 048
     Dates: start: 20010101
  7. ZYLORIC [Concomitant]
     Indication: PROPHYLAXIS
     Route: 048
  8. LODOZ [Concomitant]
     Indication: CORONARY ARTERY BYPASS
     Route: 048
     Dates: start: 20010101
  9. CAPECITABINE [Suspect]
     Route: 048
     Dates: start: 20090120, end: 20090209

REACTIONS (1)
  - MYOCARDIAL INFARCTION [None]
